FAERS Safety Report 24551693 (Version 1)
Quarter: 2024Q4

REPORT INFORMATION
  Report Type: Spontaneous
  Country: JP (occurrence: JP)
  Receive Date: 20241026
  Receipt Date: 20241026
  Transmission Date: 20250114
  Serious: Yes (Death, Other)
  Sender: ALEXION PHARMACEUTICALS
  Company Number: JP-ASTRAZENECA-240068121_064320_P_1

PATIENT
  Age: 8 Decade

DRUGS (19)
  1. ONDEXXYA [Suspect]
     Active Substance: ANDEXANET ALFA
     Indication: Haemorrhage intracranial
     Dosage: 400 MILLIGRAM, UNK, FREQUENCY: UNK
  2. ONDEXXYA [Suspect]
     Active Substance: ANDEXANET ALFA
     Dosage: 400 MILLIGRAM, UNK, FREQUENCY: UNK
  3. ONDEXXYA [Suspect]
     Active Substance: ANDEXANET ALFA
     Dosage: 400 MILLIGRAM, UNK, FREQUENCY: UNK
  4. ONDEXXYA [Suspect]
     Active Substance: ANDEXANET ALFA
     Dosage: 400 MILLIGRAM, UNK, FREQUENCY: UNK
  5. EDOXABAN TOSYLATE [Concomitant]
     Active Substance: EDOXABAN TOSYLATE
     Dosage: DOSE UNKNOWN
  6. EDOXABAN TOSYLATE [Concomitant]
     Active Substance: EDOXABAN TOSYLATE
     Dosage: DOSE UNKNOWN
  7. EDOXABAN TOSYLATE [Concomitant]
     Active Substance: EDOXABAN TOSYLATE
     Dosage: DOSE UNKNOWN
     Route: 065
  8. EDOXABAN TOSYLATE [Concomitant]
     Active Substance: EDOXABAN TOSYLATE
     Dosage: DOSE UNKNOWN
  9. EDOXABAN TOSYLATE [Concomitant]
     Active Substance: EDOXABAN TOSYLATE
     Dosage: DOSE UNKNOWN
     Route: 065
  10. EDOXABAN TOSYLATE [Concomitant]
     Active Substance: EDOXABAN TOSYLATE
     Dosage: DOSE UNKNOWN
  11. UNSPECIFIED INGREDIENT [Concomitant]
     Active Substance: UNSPECIFIED INGREDIENT
     Dosage: DOSE UNKNOWN
  12. ONDEXXYA [Suspect]
     Active Substance: ANDEXANET ALFA
     Indication: Haemorrhage intracranial
     Dosage: 400 MILLIGRAM
  13. ONDEXXYA [Suspect]
     Active Substance: ANDEXANET ALFA
     Dosage: 400 MILLIGRAM
  14. ONDEXXYA [Suspect]
     Active Substance: ANDEXANET ALFA
     Dosage: 400 MILLIGRAM
  15. ONDEXXYA [Suspect]
     Active Substance: ANDEXANET ALFA
     Dosage: 400 MILLIGRAM
  16. OTHER AGENTS RELATING TO BLOOD AND BODY FLUIDES [Concomitant]
     Dosage: DOSE UNKNOWN
     Route: 065
  17. OTHER AGENTS RELATING TO BLOOD AND BODY FLUIDES [Concomitant]
     Dosage: DOSE UNKNOWN
  18. OTHER AGENTS RELATING TO BLOOD AND BODY FLUIDES [Concomitant]
     Dosage: DOSE UNKNOWN
     Route: 065
  19. OTHER AGENTS RELATING TO BLOOD AND BODY FLUIDES [Concomitant]
     Dosage: DOSE UNKNOWN

REACTIONS (1)
  - Haemorrhage intracranial [Fatal]
